FAERS Safety Report 9797081 (Version 1)
Quarter: 2014Q1

REPORT INFORMATION
  Report Type: Spontaneous
  Country: LB (occurrence: LB)
  Receive Date: 20140105
  Receipt Date: 20140105
  Transmission Date: 20141002
  Serious: Yes (Other)
  Sender: FDA-Public Use
  Company Number: LB-MYLANLABS-2013S1029003

PATIENT
  Age: 21 Year
  Sex: Male

DRUGS (5)
  1. VALPROATE SEMISODIUM [Suspect]
     Indication: BIPOLAR II DISORDER
     Route: 065
  2. SEROQUEL [Interacting]
     Indication: DRUG WITHDRAWAL SYNDROME
     Route: 065
  3. PANADOL [Concomitant]
     Indication: DRUG WITHDRAWAL SYNDROME
     Route: 065
  4. PROFENID [Concomitant]
     Indication: DRUG WITHDRAWAL SYNDROME
     Route: 065
  5. VALIUM [Concomitant]
     Indication: DRUG WITHDRAWAL SYNDROME
     Route: 065

REACTIONS (2)
  - Hyperammonaemia [Recovered/Resolved]
  - Drug interaction [Recovered/Resolved]
